FAERS Safety Report 25170327 (Version 2)
Quarter: 2025Q2

REPORT INFORMATION
  Report Type: Spontaneous
  Country: CN (occurrence: CN)
  Receive Date: 20250408
  Receipt Date: 20250415
  Transmission Date: 20250717
  Serious: Yes (Other)
  Sender: ALKEM
  Company Number: None

PATIENT
  Age: 50 Year
  Sex: Female

DRUGS (4)
  1. IBUPROFEN [Suspect]
     Active Substance: IBUPROFEN
     Indication: Pyrexia
     Route: 065
  2. TACROLIMUS [Suspect]
     Active Substance: TACROLIMUS
     Indication: Skin hyperpigmentation
     Route: 065
  3. HYDROQUINONE [Suspect]
     Active Substance: HYDROQUINONE
     Indication: Skin hyperpigmentation
     Route: 061
  4. TRETINOIN [Suspect]
     Active Substance: TRETINOIN
     Indication: Skin hyperpigmentation
     Route: 061

REACTIONS (3)
  - Post inflammatory pigmentation change [Recovering/Resolving]
  - Fixed eruption [Recovering/Resolving]
  - Condition aggravated [Recovering/Resolving]
